FAERS Safety Report 10421010 (Version 1)
Quarter: 2014Q3

REPORT INFORMATION
  Report Type: Spontaneous
  Country: US (occurrence: None)
  Receive Date: 20140718
  Receipt Date: 20140718
  Transmission Date: 20150326
  Serious: Yes (Hospitalization)
  Sender: FDA-Public Use
  Company Number: 1222651

PATIENT
  Age: 59 Year
  Sex: Male
  Weight: 119.75 kg

DRUGS (5)
  1. PRISTIQ (DESVENLAFAXINE SUCCINATE) [Concomitant]
     Active Substance: DESVENLAFAXINE SUCCINATE
  2. KLONOPIN [Suspect]
     Active Substance: CLONAZEPAM
     Indication: ANXIETY
  3. XANAX XR (ALPRAZOLAM) [Concomitant]
  4. PRISTIQ (DESVENLAFAXINE SUCCINATE) [Concomitant]
     Active Substance: DESVENLAFAXINE SUCCINATE
  5. METFORMIN [Concomitant]
     Active Substance: METFORMIN HYDROCHLORIDE

REACTIONS (10)
  - Paraesthesia [None]
  - Glycosylated haemoglobin increased [None]
  - Wrong technique in drug usage process [None]
  - Incorrect dose administered [None]
  - Hepatic enzyme increased [None]
  - Dysstasia [None]
  - Hypoaesthesia [None]
  - Swelling [None]
  - Asthenia [None]
  - Drug dose omission [None]

NARRATIVE: CASE EVENT DATE: 2013
